FAERS Safety Report 4390093-2 (Version None)
Quarter: 2004Q3

REPORT INFORMATION
  Report Type: 
  Country: None (occurrence: None)
  Receive Date: 20040706
  Receipt Date: 20040519
  Transmission Date: 20050211
  Serious: Yes (Hospitalization, Disabling)
  Sender: FDA-Public Use
  Company Number: FR-AMGEN-UK076958

PATIENT
  Age: 61 Year
  Sex: Male
  Weight: 70 kg

DRUGS (6)
  1. ARANESP [Suspect]
     Indication: ANAEMIA OF MALIGNANT DISEASE
     Route: 058
     Dates: start: 20040201
  2. SOLUPRED [Suspect]
     Route: 065
     Dates: end: 20040515
  3. CARBOPLATIN [Concomitant]
     Route: 065
     Dates: start: 20040120, end: 20040325
  4. MORPHINE [Concomitant]
     Route: 065
  5. ETOPOSIDE [Concomitant]
     Route: 065
     Dates: start: 20040120, end: 20040325
  6. PARIET [Concomitant]

REACTIONS (5)
  - DRUG INEFFECTIVE [None]
  - INFLAMMATION [None]
  - OEDEMA [None]
  - POLYARTHRITIS [None]
  - RHEUMATOID ARTHRITIS [None]
